FAERS Safety Report 23417469 (Version 3)
Quarter: 2024Q1

REPORT INFORMATION
  Report Type: Spontaneous
  Country: DE (occurrence: DE)
  Receive Date: 20240118
  Receipt Date: 20240206
  Transmission Date: 20240410
  Serious: Yes (Hospitalization)
  Sender: FDA-Public Use
  Company Number: DE-JNJFOC-20230945321

PATIENT
  Age: 75 Year
  Sex: Female
  Weight: 57 kg

DRUGS (80)
  1. DEXAMETHASONE [Suspect]
     Active Substance: DEXAMETHASONE
     Dosage: 20 MG
     Route: 048
     Dates: start: 20230517
  2. DEXAMETHASONE [Suspect]
     Active Substance: DEXAMETHASONE
     Dosage: 20 MG
     Route: 048
     Dates: start: 20230531
  3. DEXAMETHASONE [Suspect]
     Active Substance: DEXAMETHASONE
     Dosage: 20 MG
     Route: 048
     Dates: start: 20230614
  4. DEXAMETHASONE [Suspect]
     Active Substance: DEXAMETHASONE
     Dosage: 20 MG
     Route: 048
     Dates: start: 20230628
  5. DEXAMETHASONE [Suspect]
     Active Substance: DEXAMETHASONE
     Dosage: 20 MG
     Route: 048
     Dates: start: 20230712
  6. DEXAMETHASONE [Suspect]
     Active Substance: DEXAMETHASONE
     Dosage: 20 MG
     Route: 048
     Dates: start: 20230809
  7. DEXAMETHASONE [Suspect]
     Active Substance: DEXAMETHASONE
     Dosage: 20 MG
     Route: 048
     Dates: start: 20230824
  8. DEXAMETHASONE [Suspect]
     Active Substance: DEXAMETHASONE
     Dosage: 20 MG
     Route: 048
     Dates: start: 20230907
  9. DEXAMETHASONE [Suspect]
     Active Substance: DEXAMETHASONE
     Indication: Plasma cell myeloma
     Dosage: 20.000MG
     Route: 042
     Dates: start: 20230711
  10. DEXAMETHASONE [Suspect]
     Active Substance: DEXAMETHASONE
     Dosage: 20.000MG
     Route: 042
     Dates: start: 20230320
  11. DEXAMETHASONE [Suspect]
     Active Substance: DEXAMETHASONE
     Dosage: 20.000MG
     Route: 042
     Dates: start: 20230321
  12. DEXAMETHASONE [Suspect]
     Active Substance: DEXAMETHASONE
     Dosage: 20.000MG
     Route: 042
     Dates: start: 20230328
  13. DEXAMETHASONE [Suspect]
     Active Substance: DEXAMETHASONE
     Dosage: 20.000MG
     Route: 042
     Dates: start: 20230404
  14. DEXAMETHASONE [Suspect]
     Active Substance: DEXAMETHASONE
     Dosage: 20.000MG
     Route: 042
     Dates: start: 20230418
  15. DEXAMETHASONE [Suspect]
     Active Substance: DEXAMETHASONE
     Dosage: 20.000MG
     Route: 042
     Dates: start: 20230425
  16. DEXAMETHASONE [Suspect]
     Active Substance: DEXAMETHASONE
     Dosage: 20.000MG
     Route: 042
     Dates: start: 20230502
  17. DEXAMETHASONE [Suspect]
     Active Substance: DEXAMETHASONE
     Dosage: 20.000MG
     Route: 042
     Dates: start: 20230509
  18. DEXAMETHASONE [Suspect]
     Active Substance: DEXAMETHASONE
     Dosage: 20.000MG
     Route: 042
     Dates: start: 20230516
  19. DEXAMETHASONE [Suspect]
     Active Substance: DEXAMETHASONE
     Dosage: 20.000MG
     Route: 042
     Dates: start: 20230530
  20. DEXAMETHASONE [Suspect]
     Active Substance: DEXAMETHASONE
     Dosage: 20.000MG
     Route: 042
     Dates: start: 20230613
  21. DEXAMETHASONE [Suspect]
     Active Substance: DEXAMETHASONE
     Dosage: 20.000MG
     Route: 042
     Dates: start: 20230627
  22. DEXAMETHASONE [Suspect]
     Active Substance: DEXAMETHASONE
     Dosage: 20.000MG
     Route: 042
     Dates: start: 20230808
  23. DEXAMETHASONE [Suspect]
     Active Substance: DEXAMETHASONE
     Dosage: 20.000MG
     Route: 042
     Dates: start: 20230823
  24. DEXAMETHASONE [Suspect]
     Active Substance: DEXAMETHASONE
     Dosage: 20.000MG
     Route: 042
     Dates: start: 20230906
  25. DEXAMETHASONE [Suspect]
     Active Substance: DEXAMETHASONE
     Dosage: 20.000MG
     Route: 042
     Dates: start: 20230927
  26. DEXAMETHASONE [Suspect]
     Active Substance: DEXAMETHASONE
     Dosage: 20.000MG
     Route: 048
     Dates: start: 20230907
  27. DEXAMETHASONE [Suspect]
     Active Substance: DEXAMETHASONE
     Dosage: 20.000MG
     Route: 048
     Dates: start: 20230928
  28. DARATUMUMAB [Suspect]
     Active Substance: DARATUMUMAB
     Indication: Plasma cell myeloma
     Dosage: 16.000MG/KG
     Route: 042
     Dates: start: 20230502
  29. DARATUMUMAB [Suspect]
     Active Substance: DARATUMUMAB
     Dosage: 16.000MG/KG
     Route: 042
     Dates: start: 20230328
  30. DARATUMUMAB [Suspect]
     Active Substance: DARATUMUMAB
     Dosage: 16.000MG/KG
     Route: 042
     Dates: start: 20230404
  31. DARATUMUMAB [Suspect]
     Active Substance: DARATUMUMAB
     Dosage: 16.000MG/KG
     Route: 042
     Dates: start: 20230412
  32. DARATUMUMAB [Suspect]
     Active Substance: DARATUMUMAB
     Dosage: 16.000MG/KG
     Route: 042
     Dates: start: 20230418
  33. DARATUMUMAB [Suspect]
     Active Substance: DARATUMUMAB
     Dosage: 16.000MG/KG
     Route: 042
     Dates: start: 20230425
  34. DARATUMUMAB [Suspect]
     Active Substance: DARATUMUMAB
     Dosage: 16.000MG/KG
     Route: 042
     Dates: start: 20230509
  35. DARATUMUMAB [Suspect]
     Active Substance: DARATUMUMAB
     Dosage: 16.000MG/KG
     Route: 042
     Dates: start: 20230516
  36. DARATUMUMAB [Suspect]
     Active Substance: DARATUMUMAB
     Dosage: 16.000MG/KG
     Route: 042
     Dates: start: 20230530
  37. DARATUMUMAB [Suspect]
     Active Substance: DARATUMUMAB
     Dosage: 16.000MG/KG
     Route: 042
     Dates: start: 20230613
  38. DARATUMUMAB [Suspect]
     Active Substance: DARATUMUMAB
     Dosage: 16.000MG/KG
     Route: 042
     Dates: start: 20230627
  39. DARATUMUMAB [Suspect]
     Active Substance: DARATUMUMAB
     Dosage: 16.000MG/KG
     Route: 042
     Dates: start: 20230711
  40. DARATUMUMAB [Suspect]
     Active Substance: DARATUMUMAB
     Dosage: 16.000MG/KG
     Route: 042
     Dates: start: 20230808
  41. DARATUMUMAB [Suspect]
     Active Substance: DARATUMUMAB
     Dosage: 16.000MG/KG
     Route: 042
     Dates: start: 20230823
  42. DARATUMUMAB [Suspect]
     Active Substance: DARATUMUMAB
     Dosage: 16.000MG/KG
     Route: 042
     Dates: start: 20230906
  43. DARATUMUMAB [Suspect]
     Active Substance: DARATUMUMAB
     Dosage: 16.000MG/KG
     Route: 042
     Dates: start: 20230927
  44. DARATUMUMAB [Suspect]
     Active Substance: DARATUMUMAB
     Dosage: 8.000MG/KG
     Route: 042
     Dates: start: 20230320
  45. DARATUMUMAB [Suspect]
     Active Substance: DARATUMUMAB
     Dosage: 8.000MG/KG
     Route: 042
     Dates: start: 20230321
  46. LENALIDOMIDE [Suspect]
     Active Substance: LENALIDOMIDE
     Indication: Plasma cell myeloma
     Dosage: 10.000MG
     Route: 048
     Dates: start: 20230613, end: 20230703
  47. LENALIDOMIDE [Suspect]
     Active Substance: LENALIDOMIDE
     Dosage: 10.000MG
     Route: 048
     Dates: start: 20230320, end: 20230409
  48. LENALIDOMIDE [Suspect]
     Active Substance: LENALIDOMIDE
     Dosage: 10.000MG
     Route: 048
     Dates: start: 20230417, end: 20230507
  49. LENALIDOMIDE [Suspect]
     Active Substance: LENALIDOMIDE
     Dosage: 10.000MG
     Route: 048
     Dates: start: 20230516, end: 20230605
  50. LENALIDOMIDE [Suspect]
     Active Substance: LENALIDOMIDE
     Dosage: 10.000MG
     Route: 048
     Dates: start: 20230711, end: 20230731
  51. LENALIDOMIDE [Suspect]
     Active Substance: LENALIDOMIDE
     Dosage: 10.000MG
     Route: 048
     Dates: start: 20230823, end: 20230911
  52. LENALIDOMIDE [Suspect]
     Active Substance: LENALIDOMIDE
     Dosage: 10.000MG
     Route: 048
     Dates: start: 20230927, end: 20240125
  53. ALLOPURINOL [Concomitant]
     Active Substance: ALLOPURINOL
     Indication: Hyperuricaemia
     Dosage: 100.000MG QD
     Route: 048
     Dates: start: 20230317
  54. AMLODIPINE [Concomitant]
     Active Substance: AMLODIPINE BESYLATE
     Indication: Hypertension
     Dosage: 5 MG
     Route: 048
  55. BUDESONIDE\FORMOTEROL [Concomitant]
     Active Substance: BUDESONIDE\FORMOTEROL
     Indication: Chronic obstructive pulmonary disease
     Dosage: 160.000UG
     Route: 065
  56. CLEMASTINE [Concomitant]
     Active Substance: CLEMASTINE
     Indication: Prophylaxis
     Dosage: 2.000MG
     Route: 042
     Dates: start: 20230320
  57. CHOLECALCIFEROL [Concomitant]
     Active Substance: CHOLECALCIFEROL
     Indication: Prophylaxis
     Dosage: UNK
     Route: 065
  58. DEXAMETHASONE [Concomitant]
     Active Substance: DEXAMETHASONE
     Indication: Prophylaxis
     Dosage: 20.000MG QD
     Route: 048
     Dates: start: 20230322, end: 20230322
  59. DEXAMETHASONE [Concomitant]
     Active Substance: DEXAMETHASONE
     Dosage: 20.000MG QD
     Route: 048
     Dates: start: 20230329, end: 20230329
  60. DEXAMETHASONE [Concomitant]
     Active Substance: DEXAMETHASONE
     Dosage: 20.000MG QD
     Route: 048
     Dates: start: 20230419, end: 20230419
  61. DEXAMETHASONE [Concomitant]
     Active Substance: DEXAMETHASONE
     Dosage: 20.000MG QD
     Route: 048
     Dates: start: 20230426, end: 20230426
  62. DEXAMETHASONE [Concomitant]
     Active Substance: DEXAMETHASONE
     Dosage: 20.000MG QD
     Route: 048
     Dates: start: 20230503, end: 20230503
  63. DEXAMETHASONE [Concomitant]
     Active Substance: DEXAMETHASONE
     Dosage: 20.000MG QD
     Route: 048
     Dates: start: 20230510, end: 20230510
  64. ENOXAPARIN SODIUM [Concomitant]
     Active Substance: ENOXAPARIN SODIUM
     Indication: Prophylaxis
     Dosage: 4000 DF
     Route: 058
  65. HYDROCHLOROTHIAZIDE [Concomitant]
     Active Substance: HYDROCHLOROTHIAZIDE
     Indication: Hypertension
     Dosage: 25 MG, QD
     Route: 065
  66. INSULIN HUMAN [Concomitant]
     Active Substance: INSULIN HUMAN
     Indication: Diabetes mellitus
     Dosage: UNK
     Route: 058
  67. CALCIUM CARBONATE\CHOLECALCIFEROL [Concomitant]
     Active Substance: CALCIUM CARBONATE\CHOLECALCIFEROL
     Indication: Prophylaxis
     Dosage: QD
     Route: 065
  68. LEVOTHYROXINE [Concomitant]
     Active Substance: LEVOTHYROXINE\LEVOTHYROXINE SODIUM
     Indication: Hypothyroidism
     Dosage: 125 UG, QD
     Route: 048
  69. METAMIZOLE [Concomitant]
     Active Substance: METAMIZOLE
     Indication: Spinal stenosis
     Dosage: 500.000MG
     Route: 048
  70. METOPROLOL [Concomitant]
     Active Substance: METOPROLOL
     Indication: Hypertension
     Dosage: 23.75 MG, QD
     Route: 048
  71. MONTELUKAST [Concomitant]
     Active Substance: MONTELUKAST SODIUM
     Indication: Rhinitis allergic
     Dosage: 10.000MG
     Route: 048
     Dates: start: 20230317
  72. OLODATEROL\TIOTROPIUM [Concomitant]
     Active Substance: OLODATEROL\TIOTROPIUM
     Indication: Chronic obstructive pulmonary disease
     Dosage: 2.500UG QD
     Route: 055
  73. ONDANSETRON [Concomitant]
     Active Substance: ONDANSETRON
     Indication: Prophylaxis
     Dosage: 4 MG
     Route: 065
     Dates: start: 20230526
  74. OXYCODONE [Concomitant]
     Active Substance: OXYCODONE\OXYCODONE HYDROCHLORIDE
     Indication: Cancer pain
     Dosage: 5 MG
     Route: 048
     Dates: start: 20230327
  75. Oxycodone/naloxone g.l. [Concomitant]
     Indication: Cancer pain
     Dosage: 5.000MG QD
     Route: 048
     Dates: start: 20230327
  76. PANTOPRAZOLE [Concomitant]
     Active Substance: PANTOPRAZOLE
     Indication: Prophylaxis
     Dosage: 40 MG, QD
     Route: 048
  77. ACETAMINOPHEN [Concomitant]
     Active Substance: ACETAMINOPHEN
     Indication: Prophylaxis
     Dosage: 1000.000MG
     Route: 048
     Dates: start: 20230320
  78. RAMIPRIL [Concomitant]
     Active Substance: RAMIPRIL
     Indication: Hypertension
     Dosage: 5.000MG
     Route: 048
  79. ALBUTEROL [Concomitant]
     Active Substance: ALBUTEROL
     Indication: Chronic obstructive pulmonary disease
     Route: 065
  80. SITAGLIPTIN [Concomitant]
     Active Substance: SITAGLIPTIN
     Indication: Diabetes mellitus
     Dosage: UNK UNK, QD
     Route: 048

REACTIONS (2)
  - Urosepsis [Recovered/Resolved]
  - Off label use [Unknown]

NARRATIVE: CASE EVENT DATE: 20230911
